FAERS Safety Report 6860432-9 (Version None)
Quarter: 2010Q3

REPORT INFORMATION
  Report Type: 
  Country: None (occurrence: None)
  Receive Date: 20100720
  Receipt Date: 20100705
  Transmission Date: 20110219
  Serious: Yes (Other)
  Sender: FDA-Public Use
  Company Number: TW-ROCHE-713255

PATIENT
  Age: 65 Year
  Sex: Male

DRUGS (10)
  1. NAPROXEN [Suspect]
     Indication: PRODUCT USED FOR UNKNOWN INDICATION
     Route: 065
  2. CEFAZOLIN [Concomitant]
     Route: 042
  3. GENTAMICIN [Concomitant]
  4. ACETAMINOPHEN [Concomitant]
  5. METOCLOPRAMIDE [Concomitant]
  6. TAMSULOSIN HYDROCHLORIDE [Concomitant]
     Indication: BENIGN PROSTATIC HYPERPLASIA
  7. TOLTERODINE [Concomitant]
     Indication: BENIGN PROSTATIC HYPERPLASIA
  8. ACARBOSE [Concomitant]
  9. GLIMEPIRIDE [Concomitant]
  10. LEVOFLOXACIN [Concomitant]

REACTIONS (3)
  - PSEUDOLYMPHOMA [None]
  - RASH MACULO-PAPULAR [None]
  - SKIN LESION [None]
